FAERS Safety Report 18734004 (Version 1)
Quarter: 2021Q1

REPORT INFORMATION
  Report Type: Spontaneous
  Country: US (occurrence: US)
  Receive Date: 20210112
  Receipt Date: 20210112
  Transmission Date: 20210419
  Serious: No
  Sender: FDA-Public Use
  Company Number: None

PATIENT
  Age: 57 Year
  Sex: Male
  Weight: 73.9 kg

DRUGS (1)
  1. ASPIRIN. [Suspect]
     Active Substance: ASPIRIN
     Dates: end: 20210103

REACTIONS (10)
  - Computerised tomogram abnormal [None]
  - Decreased appetite [None]
  - Blood bilirubin increased [None]
  - Cough [None]
  - Vomiting [None]
  - Dyspnoea [None]
  - Bone cancer metastatic [None]
  - Nausea [None]
  - Hepatic enzyme increased [None]
  - Metastatic neoplasm [None]

NARRATIVE: CASE EVENT DATE: 20210104
